FAERS Safety Report 4354011-5 (Version None)
Quarter: 2004Q2

REPORT INFORMATION
  Report Type: 
  Country: None (occurrence: None)
  Receive Date: 20040503
  Receipt Date: 20040422
  Transmission Date: 20050107
  Serious: Yes (Hospitalization)
  Sender: FDA-Public Use
  Company Number: 200113562GDS

PATIENT
  Age: 26 Year
  Sex: Male

DRUGS (7)
  1. AVELOX [Suspect]
     Indication: PNEUMONIA
     Dosage: 400 MG, TOTAL DAILY, ORAL
     Route: 048
     Dates: start: 20010602, end: 20010606
  2. RIFAMPICIN [Concomitant]
  3. INH [Concomitant]
  4. PYRAZINAMIDE [Concomitant]
  5. ACETYLCYSTEINE [Concomitant]
  6. LOSEC [Concomitant]
  7. DILATAMOL [Concomitant]

REACTIONS (2)
  - LIVER FUNCTION TEST ABNORMAL [None]
  - PYREXIA [None]
